FAERS Safety Report 23403425 (Version 1)
Quarter: 2024Q1

REPORT INFORMATION
  Report Type: Spontaneous
  Country: SA (occurrence: SA)
  Receive Date: 20240116
  Receipt Date: 20240116
  Transmission Date: 20240410
  Serious: Yes (Hospitalization, Other)
  Sender: FDA-Public Use
  Company Number: SA-HIKMA PHARMACEUTICALS-SA-H14001-24-00221

PATIENT
  Age: 7 Month
  Sex: Female
  Weight: 5.8 kg

DRUGS (2)
  1. PROPRANOLOL HYDROCHLORIDE [Suspect]
     Active Substance: PROPRANOLOL HYDROCHLORIDE
     Indication: Infantile haemangioma
     Dosage: 3.15 MILLILITER, BID
     Route: 048
  2. PROPRANOLOL HYDROCHLORIDE [Suspect]
     Active Substance: PROPRANOLOL HYDROCHLORIDE
     Dosage: 6.5 MILLILITER, BID
     Route: 048

REACTIONS (3)
  - Accidental overdose [Recovered/Resolved]
  - Medication error [Recovered/Resolved]
  - Somnolence [Unknown]
